FAERS Safety Report 16937477 (Version 1)
Quarter: 2019Q4

REPORT INFORMATION
  Report Type: Spontaneous
  Country: GB (occurrence: GB)
  Receive Date: 20191018
  Receipt Date: 20191018
  Transmission Date: 20200122
  Serious: Yes (Hospitalization, Other)
  Sender: FDA-Public Use
  Company Number: GB-MYLANLABS-2019M1097853

PATIENT
  Age: 64 Year
  Sex: Male

DRUGS (1)
  1. AMIODARONE [Suspect]
     Active Substance: AMIODARONE
     Indication: VENTRICULAR TACHYCARDIA
     Dosage: UNK
     Route: 048
     Dates: start: 2017

REACTIONS (4)
  - Electrolyte imbalance [Unknown]
  - Blood calcium increased [Recovering/Resolving]
  - Hyperthyroidism [Recovering/Resolving]
  - Vomiting [Recovering/Resolving]
